FAERS Safety Report 7230627-3 (Version None)
Quarter: 2011Q1

REPORT INFORMATION
  Report Type: 
  Country: None (occurrence: None)
  Receive Date: 20110118
  Receipt Date: 20110113
  Transmission Date: 20110831
  Serious: Yes (Life-Threatening, Disabling, Other)
  Sender: FDA-Public Use
  Company Number: PHHY2011US02197

PATIENT
  Sex: Female
  Weight: 44.898 kg

DRUGS (7)
  1. LISINOPRIL [Concomitant]
     Indication: HYPERTENSION
     Dosage: 20 MG, UNK
     Route: 048
  2. TYLENOL [Concomitant]
  3. RECLAST [Suspect]
     Indication: OSTEOPOROSIS
     Dosage: 5 MG, YEARLY
     Dates: start: 20100624
  4. VITAMIN D [Concomitant]
     Indication: OSTEOPOROSIS
     Dosage: 400 IU, BID
     Route: 048
  5. MELOX [Concomitant]
  6. CALCIUM [Concomitant]
     Indication: OSTEOPOROSIS
     Dosage: 500 MG, BID
  7. VYTORIN [Concomitant]
     Indication: HYPERCHOLESTEROLAEMIA
     Dosage: 20 MG, UNK

REACTIONS (20)
  - LOCALISED INFECTION [None]
  - JAW DISORDER [None]
  - TENDERNESS [None]
  - GENERAL PHYSICAL HEALTH DETERIORATION [None]
  - HYPERCHLORHYDRIA [None]
  - EATING DISORDER [None]
  - HOT FLUSH [None]
  - LIMB INJURY [None]
  - JOINT SPRAIN [None]
  - PAIN IN JAW [None]
  - PAIN [None]
  - FOOT FRACTURE [None]
  - NIGHT SWEATS [None]
  - WEIGHT DECREASED [None]
  - OEDEMA PERIPHERAL [None]
  - BONE PAIN [None]
  - PAIN IN EXTREMITY [None]
  - FEELING HOT [None]
  - FEELING ABNORMAL [None]
  - BURNING SENSATION [None]
